FAERS Safety Report 10025318 (Version 1)
Quarter: 2014Q1

REPORT INFORMATION
  Report Type: Spontaneous
  Country: EC (occurrence: EC)
  Receive Date: 20140320
  Receipt Date: 20140320
  Transmission Date: 20141002
  Serious: Yes (Other)
  Sender: FDA-Public Use
  Company Number: EC-PFIZER INC-2014079057

PATIENT
  Age: 52 Year
  Sex: Female

DRUGS (1)
  1. NORVASC [Suspect]
     Indication: HYPERTENSION
     Dosage: 2.5 MG (A HALF OF 5MG TABLET), 1X/DAY
     Route: 048
     Dates: start: 2012, end: 201402

REACTIONS (3)
  - Infected varicose vein [Unknown]
  - Local swelling [Recovered/Resolved]
  - Blood pressure inadequately controlled [Recovered/Resolved]
